APPROVED DRUG PRODUCT: LOPRESSIDONE
Active Ingredient: CHLORTHALIDONE; METOPROLOL TARTRATE
Strength: 25MG;100MG
Dosage Form/Route: CAPSULE;ORAL
Application: N019451 | Product #001
Applicant: NOVARTIS PHARMACEUTICALS CORP
Approved: Dec 31, 1987 | RLD: No | RS: No | Type: DISCN